FAERS Safety Report 19663632 (Version 3)
Quarter: 2021Q3

REPORT INFORMATION
  Report Type: Report from Study
  Country: US (occurrence: US)
  Receive Date: 20210805
  Receipt Date: 20210825
  Transmission Date: 20211014
  Serious: No
  Sender: FDA-Public Use
  Company Number: US-SUNOVION-2021SUN002656

PATIENT
  Age: 71 Year
  Sex: Female

DRUGS (3)
  1. KYNMOBI [Suspect]
     Active Substance: APOMORPHINE HYDROCHLORIDE
     Dosage: 20 MG
     Route: 060
     Dates: start: 20210706, end: 20210706
  2. KYNMOBI [Suspect]
     Active Substance: APOMORPHINE HYDROCHLORIDE
     Dosage: 15 MG
     Route: 060
     Dates: start: 20210630, end: 20210630
  3. KYNMOBI [Suspect]
     Active Substance: APOMORPHINE HYDROCHLORIDE
     Indication: PARKINSON^S DISEASE
     Dosage: 25 MG
     Route: 060
     Dates: start: 20210707

REACTIONS (11)
  - Lip pain [Unknown]
  - Oral discomfort [Unknown]
  - Mouth swelling [Unknown]
  - Oral pain [Unknown]
  - Oropharyngeal pain [Not Recovered/Not Resolved]
  - Mouth ulceration [Unknown]
  - Cheilitis [Unknown]
  - Stomatitis [Not Recovered/Not Resolved]
  - Lip blister [Unknown]
  - Paraesthesia [Recovered/Resolved]
  - Lip swelling [Unknown]

NARRATIVE: CASE EVENT DATE: 20210630
